FAERS Safety Report 5686351-1 (Version None)
Quarter: 2008Q1

REPORT INFORMATION
  Report Type: 
  Country: None (occurrence: None)
  Receive Date: 20080328
  Receipt Date: 20070809
  Transmission Date: 20080703
  Serious: No
  Sender: FDA-Public Use
  Company Number: US-BAYER-US-2007-026197

PATIENT
  Age: 23 Year
  Weight: 126 kg

DRUGS (2)
  1. MIRENA [Suspect]
     Indication: CONTRACEPTION
     Route: 015
     Dates: start: 20060803, end: 20060805
  2. MIRENA [Suspect]
     Route: 015
     Dates: start: 20060801, end: 20060801

REACTIONS (6)
  - ABDOMINAL PAIN [None]
  - HAEMORRHAGE [None]
  - INTRA-UTERINE CONTRACEPTIVE DEVICE EXPELLED [None]
  - PROCEDURAL PAIN [None]
  - SKIN DISCOLOURATION [None]
  - VAGINAL DISCHARGE [None]
